FAERS Safety Report 17238618 (Version 1)
Quarter: 2020Q1

REPORT INFORMATION
  Report Type: Report from Study
  Country: JP (occurrence: JP)
  Receive Date: 20200106
  Receipt Date: 20200106
  Transmission Date: 20200409
  Serious: Yes (Other)
  Sender: FDA-Public Use
  Company Number: JP-SA-2019SA362352

PATIENT

DRUGS (16)
  1. CYCLOPHOSPHAMIDE. [Suspect]
     Active Substance: CYCLOPHOSPHAMIDE
     Dosage: 1.0 G/M2 (DAY 36) IV OVER 1 HOURUNK
     Route: 042
  2. METHOTREXATE. [Suspect]
     Active Substance: METHOTREXATE
     Dosage: AGE-ADJUSTED IT METHOTREXATE DAYS 36, 50
     Route: 037
  3. CYTARABINE. [Suspect]
     Active Substance: CYTARABINE
     Dosage: AGE ADJUSTED IT CYTARABINE DAYS 36, 50
     Route: 037
  4. VINCRISTINE SULFATE. [Suspect]
     Active Substance: VINCRISTINE SULFATE
     Indication: NON-HODGKIN^S LYMPHOMA
     Dosage: 1.5 MG/M2; (MAX 2 MG) (DAYS 8, 15, 22, 29)
     Route: 042
  5. DAUNORUBICIN [Suspect]
     Active Substance: DAUNORUBICIN
     Indication: NON-HODGKIN^S LYMPHOMA
     Dosage: 40 MG/M2 (MAX 60 MG) OVER 1 HOUR  DAYS 8, 15, 22
     Route: 042
  6. ASPARAGINASE [Suspect]
     Active Substance: ASPARAGINASE
     Indication: NON-HODGKIN^S LYMPHOMA
     Dosage: 6000 U/M2 (DAYS 9, 11, 13, 16, 18, 20, 23,25, 27) IV OR IM
  7. HYDROCORTISONE. [Suspect]
     Active Substance: HYDROCORTISONE
     Dosage: AGE ADJUSTED IT HYDROCORTISONE  DAYS 36, 50
     Route: 037
  8. HYDROCORTISONE. [Suspect]
     Active Substance: HYDROCORTISONE
     Indication: NON-HODGKIN^S LYMPHOMA
     Dosage: AGE ADJUSTED IT HYDROCORTISONE DAYS 1, (8)A, 15, (23)A, 29
     Route: 037
  9. 6-MERCAPTOPURINE MONOHYDRATE [Suspect]
     Active Substance: MERCAPTOPURINE
     Indication: NON-HODGKIN^S LYMPHOMA
     Dosage: 60 MG/M2, QD (DAYS 36-63)
     Route: 048
  10. CYCLOPHOSPHAMIDE. [Suspect]
     Active Substance: CYCLOPHOSPHAMIDE
     Dosage: 500 MG/M2 (IV OVER 1 HOUR) DAY 50
  11. CYTARABINE. [Suspect]
     Active Substance: CYTARABINE
     Indication: NON-HODGKIN^S LYMPHOMA
     Dosage: AGE ADJUSTED IT CYTARABINE DAYS 1, (8)A, 15, (23)A, 29
     Route: 037
  12. CYCLOPHOSPHAMIDE. [Suspect]
     Active Substance: CYCLOPHOSPHAMIDE
     Indication: NON-HODGKIN^S LYMPHOMA
     Dosage: 1 G/M2 OVER 1 HR (DAY 8)
     Route: 042
  13. CYTARABINE. [Suspect]
     Active Substance: CYTARABINE
     Dosage: 75 MG/M2, QD, DAYS 36?39, 43?46, 50?53, 57?60
     Route: 042
  14. METHOTREXATE. [Suspect]
     Active Substance: METHOTREXATE
     Indication: NON-HODGKIN^S LYMPHOMA
     Dosage: AGE-ADJUSTED IT METHOREXATE DAYS 1, (8)A, 15, (23)A, 29
     Route: 037
  15. PREDNISOLONE. [Suspect]
     Active Substance: PREDNISOLONE
     Indication: NON-HODGKIN^S LYMPHOMA
     Dosage: (ORAL OR IV) 30 MG/M2 PER DAY (MAX 45 MG) DAYS 1-3
  16. PREDNISOLONE. [Suspect]
     Active Substance: PREDNISOLONE
     Dosage: 60 MG/M2, QD (MAX 80 MG) DAY 4-28

REACTIONS (1)
  - Venoocclusive liver disease [Unknown]
